FAERS Safety Report 4804687-0 (Version None)
Quarter: 2005Q4

REPORT INFORMATION
  Report Type: 
  Country: None (occurrence: None)
  Receive Date: 20051020
  Receipt Date: 20051010
  Transmission Date: 20060501
  Serious: No
  Sender: FDA-Public Use
  Company Number: US-JNJFOC-20051002656

PATIENT
  Age: 64 Year
  Sex: Female

DRUGS (4)
  1. REMINYL [Suspect]
     Indication: TRAUMATIC BRAIN INJURY
     Route: 048
  2. LEXAPRO [Concomitant]
     Indication: ANTIDEPRESSANT THERAPY
  3. LAMICTAL [Concomitant]
     Indication: DRUG USE FOR UNKNOWN INDICATION
  4. ANTIBIOTIC THERAPY (NOS) [Concomitant]
     Indication: INFECTION

REACTIONS (1)
  - LUNG INFECTION [None]
